FAERS Safety Report 8189525-3 (Version None)
Quarter: 2012Q1

REPORT INFORMATION
  Report Type: 
  Country: None (occurrence: None)
  Receive Date: 20120307
  Receipt Date: 20120225
  Transmission Date: 20120608
  Serious: Yes (Other)
  Sender: FDA-Public Use
  Company Number: CA-JNJFOC-20120213669

PATIENT
  Sex: Female
  Weight: 50 kg

DRUGS (7)
  1. REMICADE [Suspect]
     Indication: CROHN'S DISEASE
     Route: 042
     Dates: start: 20120225
  2. BENADRYL [Concomitant]
     Indication: PREMEDICATION
     Route: 042
  3. ACETAMINOPHEN [Concomitant]
     Indication: PREMEDICATION
     Route: 048
  4. REMICADE [Suspect]
     Route: 042
     Dates: start: 20100101
  5. IMURAN [Concomitant]
     Route: 065
  6. IRON PLUS [Concomitant]
     Route: 065
  7. HYDROCORTISONE [Concomitant]
     Indication: PREMEDICATION
     Route: 042

REACTIONS (4)
  - THROAT TIGHTNESS [None]
  - CHEST DISCOMFORT [None]
  - NAUSEA [None]
  - INFUSION RELATED REACTION [None]
